FAERS Safety Report 24009788 (Version 1)
Quarter: 2024Q2

REPORT INFORMATION
  Report Type: Spontaneous
  Country: GR (occurrence: GR)
  Receive Date: 20240625
  Receipt Date: 20240625
  Transmission Date: 20240716
  Serious: No
  Sender: FDA-Public Use
  Company Number: GR-PFIZER INC-PV202400082008

PATIENT
  Age: 9 Year
  Sex: Female
  Weight: 28 kg

DRUGS (1)
  1. GENOTROPIN [Suspect]
     Active Substance: SOMATROPIN
     Indication: Growth hormone deficiency
     Dosage: 0.6 MG X 5 DAYS, 0.7 MG X 1 DAY, 0.8 MG X 1 DAY / 7 DAYS / 5.3 MG PEN
     Route: 058
     Dates: start: 20180417

REACTIONS (1)
  - Expired device used [Unknown]
